FAERS Safety Report 24585357 (Version 1)
Quarter: 2024Q4

REPORT INFORMATION
  Report Type: Spontaneous
  Country: IT (occurrence: IT)
  Receive Date: 20241106
  Receipt Date: 20241106
  Transmission Date: 20250115
  Serious: Yes (Death)
  Sender: RECORDATI
  Company Number: IT-RECORDATI RARE DISEASE INC.-2024008509

PATIENT

DRUGS (1)
  1. SYLVANT [Suspect]
     Active Substance: SILTUXIMAB
     Indication: Castleman^s disease
     Dosage: 11 MG/ KG, SINGLE INFUSION
     Route: 042
     Dates: start: 20241019

REACTIONS (1)
  - Death [Fatal]

NARRATIVE: CASE EVENT DATE: 20241001
